FAERS Safety Report 10163894 (Version 2)
Quarter: 2015Q1

REPORT INFORMATION
  Report Type: Report from Study
  Country: CL (occurrence: CL)
  Receive Date: 20140510
  Receipt Date: 20150316
  Transmission Date: 20150720
  Serious: Yes (Other)
  Sender: FDA-Public Use
  Company Number: CL-ROCHE-1399056

PATIENT
  Age: 86 Year
  Sex: Female

DRUGS (2)
  1. MIRCERA [Suspect]
     Active Substance: PEGZEREPOETIN ALFA
     Route: 058
  2. MIRCERA [Suspect]
     Active Substance: PEGZEREPOETIN ALFA
     Indication: NEPHROGENIC ANAEMIA
     Route: 058
     Dates: start: 20090601

REACTIONS (4)
  - Renal failure [Unknown]
  - Depressive symptom [Recovering/Resolving]
  - Haematocrit decreased [Not Recovered/Not Resolved]
  - Haematocrit decreased [Not Recovered/Not Resolved]

NARRATIVE: CASE EVENT DATE: 201404
